FAERS Safety Report 5168406-3 (Version None)
Quarter: 2006Q4

REPORT INFORMATION
  Report Type: 
  Country: None (occurrence: None)
  Receive Date: 20061201
  Receipt Date: 20060727
  Transmission Date: 20070319
  Serious: No
  Sender: FDA-Public Use
  Company Number: 2006088992

PATIENT
  Age: 36 Year
  Sex: Male
  Weight: 85 kg

DRUGS (5)
  1. SILDENAFIL CITRATE [Suspect]
     Indication: PULMONARY HYPERTENSION
     Dosage: 75 MG (25 MG, 3 IN 1 D), ORAL
     Route: 048
     Dates: start: 20020904
  2. BERAPROST SODIUM                       (BERAPROST SODIUM) [Concomitant]
  3. URSO               (URSODEOXYCHOLIC ACID) [Concomitant]
  4. ALDACTONE [Concomitant]
  5. LASIX [Concomitant]

REACTIONS (3)
  - CARDIAC FAILURE [None]
  - FACIAL PALSY [None]
  - OFF LABEL USE [None]
